FAERS Safety Report 6430907-5 (Version None)
Quarter: 2009Q4

REPORT INFORMATION
  Report Type: 
  Country: None (occurrence: None)
  Receive Date: 20091106
  Receipt Date: 20091026
  Transmission Date: 20100525
  Serious: Yes (Other)
  Sender: FDA-Public Use
  Company Number: JP-MERCK-0910USA01102

PATIENT
  Age: 70 Year

DRUGS (15)
  1. PEPCID RPD [Suspect]
     Route: 048
     Dates: start: 20090401, end: 20090929
  2. RIMATIL [Suspect]
     Route: 048
     Dates: start: 20090401, end: 20090929
  3. VOLTAREN [Suspect]
     Route: 048
     Dates: start: 20090401, end: 20090929
  4. ONON [Suspect]
     Route: 048
     Dates: start: 20090801, end: 20090929
  5. GLIMICRON [Concomitant]
     Route: 048
     Dates: start: 20030101, end: 20090929
  6. VOGLIBOSE [Concomitant]
     Route: 048
     Dates: start: 20030101, end: 20090929
  7. ATENEGINE [Concomitant]
     Route: 048
     Dates: start: 20030101, end: 20090929
  8. DIOVAN [Concomitant]
     Route: 048
     Dates: start: 20030101, end: 20090929
  9. SELBEX [Concomitant]
     Route: 065
     Dates: start: 20030101, end: 20090929
  10. TATSUPLAMIN [Concomitant]
     Route: 048
     Dates: start: 20030101, end: 20090929
  11. GLICLAZIDE [Concomitant]
     Route: 065
     Dates: start: 20030101, end: 20090929
  12. MUCODYNE [Concomitant]
     Route: 065
     Dates: start: 20090801, end: 20090929
  13. MUCOSOLVAN [Concomitant]
     Route: 065
     Dates: start: 20090801, end: 20090929
  14. PLETAL [Concomitant]
     Route: 048
     Dates: start: 20030101, end: 20090929
  15. HERBS (UNSPECIFIED) [Suspect]
     Route: 048
     Dates: start: 20090801, end: 20090929

REACTIONS (1)
  - INTERSTITIAL LUNG DISEASE [None]
